FAERS Safety Report 7736284-1 (Version None)
Quarter: 2011Q3

REPORT INFORMATION
  Report Type: 
  Country: None (occurrence: None)
  Receive Date: 20110908
  Receipt Date: 20110901
  Transmission Date: 20111222
  Serious: Yes (Other)
  Sender: FDA-Public Use
  Company Number: IE-AMGEN-IRLSP2011033638

PATIENT
  Age: 48 Year
  Sex: Female

DRUGS (4)
  1. BACLOFEN [Concomitant]
     Dosage: 10 MG, 2X/DAY
     Route: 048
  2. ENBREL [Suspect]
     Indication: RHEUMATOID ARTHRITIS
     Dosage: 50 MG, QWK
     Route: 058
     Dates: start: 20110201
  3. ARCOXIA [Concomitant]
     Dosage: 90 MG, 1X/DAY
     Route: 048
  4. AMITRIPTYLINE HCL [Concomitant]
     Dosage: 25 MG, NOCTE
     Route: 048

REACTIONS (2)
  - PHOTOSENSITIVITY REACTION [None]
  - SUNBURN [None]
